FAERS Safety Report 23784456 (Version 2)
Quarter: 2024Q2

REPORT INFORMATION
  Report Type: Spontaneous
  Country: PT (occurrence: PT)
  Receive Date: 20240425
  Receipt Date: 20240502
  Transmission Date: 20240716
  Serious: Yes (Other)
  Sender: FDA-Public Use
  Company Number: PT-002147023-NVSC2024PT083865

PATIENT
  Age: 62 Year
  Sex: Female

DRUGS (7)
  1. AFINITOR [Suspect]
     Active Substance: EVEROLIMUS
     Indication: Product used for unknown indication
     Dosage: 10 MG, QD
     Route: 065
     Dates: start: 202105
  2. AFINITOR [Suspect]
     Active Substance: EVEROLIMUS
     Dosage: 5 MG, QD
     Route: 065
  3. LANREOTIDE [Suspect]
     Active Substance: LANREOTIDE
     Indication: Product used for unknown indication
     Dosage: 120 MG (EVERY 28 DAYS)
     Route: 065
     Dates: start: 202105
  4. LANREOTIDE [Suspect]
     Active Substance: LANREOTIDE
     Dosage: 120 MG (EVERY 28 DAYS)
     Route: 065
  5. CAPECITABINE [Concomitant]
     Active Substance: CAPECITABINE
     Indication: Product used for unknown indication
     Dosage: 750 MG/M2, BID (D1 TO D14)
     Route: 065
     Dates: start: 202004
  6. TEMOZOLOMIDE [Concomitant]
     Active Substance: TEMOZOLOMIDE
     Indication: Product used for unknown indication
     Dosage: 100 MG/M2, BID (D10 TO D14)
     Route: 065
     Dates: start: 202004
  7. DENOSUMAB [Concomitant]
     Active Substance: DENOSUMAB
     Indication: Product used for unknown indication
     Dosage: 120 MG (EVERY 28 DAYS)
     Route: 065
     Dates: start: 202305

REACTIONS (9)
  - Metastases to bone [Unknown]
  - Metastases to liver [Unknown]
  - Malignant neoplasm progression [Unknown]
  - Mucosal inflammation [Unknown]
  - Tooth abscess [Unknown]
  - Skin lesion [Unknown]
  - Malnutrition [Unknown]
  - Hypermetabolism [Unknown]
  - Liver function test abnormal [Unknown]

NARRATIVE: CASE EVENT DATE: 20210101
